FAERS Safety Report 14957398 (Version 1)
Quarter: 2018Q2

REPORT INFORMATION
  Report Type: Spontaneous
  Country: GB (occurrence: GB)
  Receive Date: 20180531
  Receipt Date: 20180531
  Transmission Date: 20180711
  Serious: Yes (Life-Threatening, Other)
  Sender: FDA-Public Use
  Company Number: GB-BIODELIVERY SCIENCES INTERNATIONAL-2017BDSI0021

PATIENT
  Age: 76 Year
  Sex: Female

DRUGS (4)
  1. PROPOFOL. [Suspect]
     Active Substance: PROPOFOL
     Indication: ANAESTHESIA
  2. OCTREOTIDE. [Concomitant]
     Active Substance: OCTREOTIDE
     Indication: PRODUCT USED FOR UNKNOWN INDICATION
  3. FENTANYL UNSPECIFIED [Suspect]
     Active Substance: FENTANYL
     Indication: ANAESTHESIA
  4. VECURONIUM [Suspect]
     Active Substance: VECURONIUM BROMIDE
     Indication: ANAESTHESIA

REACTIONS (1)
  - Carcinoid crisis [Recovered/Resolved]
